FAERS Safety Report 8070824-0 (Version None)
Quarter: 2012Q1

REPORT INFORMATION
  Report Type: 
  Country: None (occurrence: None)
  Receive Date: 20120125
  Receipt Date: 20120120
  Transmission Date: 20120608
  Serious: Yes (Other)
  Sender: FDA-Public Use
  Company Number: US-GLAXOSMITHKLINE-A0962429A

PATIENT
  Age: 59 Year
  Sex: Male

DRUGS (4)
  1. CATAPRES [Concomitant]
  2. ALBUTEROL [Suspect]
     Indication: PRODUCT USED FOR UNKNOWN INDICATION
     Route: 055
  3. XOPENEX NEB [Concomitant]
  4. VENTOLIN [Suspect]
     Indication: ASTHMA
     Dosage: 1PUFF AS REQUIRED
     Route: 055
     Dates: start: 20120119

REACTIONS (4)
  - HEADACHE [None]
  - PANIC ATTACK [None]
  - BLOOD PRESSURE INCREASED [None]
  - HYPERTENSIVE CRISIS [None]
